FAERS Safety Report 9486047 (Version 2)
Quarter: 2013Q3

REPORT INFORMATION
  Report Type: Spontaneous
  Country: US (occurrence: US)
  Receive Date: 20130829
  Receipt Date: 20130917
  Transmission Date: 20140515
  Serious: Yes (Death)
  Sender: FDA-Public Use
  Company Number: US-CELGENEUS-163-21660-13083277

PATIENT
  Age: 65 Year
  Sex: Female

DRUGS (9)
  1. ABRAXANE [Suspect]
     Indication: UTERINE CANCER
     Route: 041
     Dates: start: 20130220, end: 20130613
  2. MEGACE [Concomitant]
     Indication: DECREASED APPETITE
     Dosage: 800 MILLIGRAM
     Route: 048
     Dates: start: 20120711
  3. LASIX [Concomitant]
     Indication: OEDEMA
     Route: 065
     Dates: start: 20120711
  4. COREG [Concomitant]
     Indication: PRODUCT USED FOR UNKNOWN INDICATION
     Dosage: 3.25
     Route: 065
  5. LANOXIN [Concomitant]
     Indication: CARDIAC DISORDER
     Dosage: 0.25
     Route: 048
  6. PROMETHAZINE [Concomitant]
     Indication: NAUSEA
     Dosage: 25 MILLIGRAM
     Route: 048
     Dates: start: 20120711
  7. ZOCOR [Concomitant]
     Indication: PRODUCT USED FOR UNKNOWN INDICATION
     Route: 065
     Dates: start: 20110420
  8. FEOSOL [Concomitant]
     Indication: BLOOD IRON
     Dosage: 1
     Route: 048
  9. PROTONIX [Concomitant]
     Indication: GASTROOESOPHAGEAL REFLUX DISEASE
     Dosage: 40 MILLIGRAM
     Route: 048
     Dates: start: 20120711

REACTIONS (1)
  - Uterine cancer [Fatal]
